FAERS Safety Report 12199323 (Version 1)
Quarter: 2016Q1

REPORT INFORMATION
  Report Type: Report from Study
  Country: DE (occurrence: DE)
  Receive Date: 20160322
  Receipt Date: 20160322
  Transmission Date: 20160526
  Serious: Yes (Death, Hospitalization)
  Sender: FDA-Public Use
  Company Number: DE-ACTELION-A-CH2016-133257

PATIENT
  Age: 48 Year
  Sex: Male
  Weight: 65 kg

DRUGS (23)
  1. ENALAPRIL [Concomitant]
     Active Substance: ENALAPRIL
     Indication: HYPERTENSION
  2. DARBEPOETIN ALFA [Concomitant]
     Active Substance: DARBEPOETIN ALFA
     Indication: ANAEMIA
     Dosage: UNK
     Dates: start: 2016, end: 20160223
  3. TORASEMID [Concomitant]
     Active Substance: TORSEMIDE
     Indication: RENAL FAILURE
     Dosage: UNK
     Dates: start: 2016, end: 201602
  4. TORASEMID [Concomitant]
     Active Substance: TORSEMIDE
     Indication: HYPERTENSION
  5. ACETYLSALICYLIC ACID [Concomitant]
     Active Substance: ASPIRIN
     Dosage: UNK
     Dates: end: 201602
  6. ESOMEPRAZOLE [Concomitant]
     Active Substance: ESOMEPRAZOLE
     Dosage: UNK
     Dates: start: 2016, end: 20160223
  7. BISOPROLOL [Concomitant]
     Active Substance: BISOPROLOL
     Indication: RENAL FAILURE
     Dosage: UNK
     Dates: end: 201602
  8. FOLIC ACID. [Concomitant]
     Active Substance: FOLIC ACID
     Indication: PROPHYLAXIS
     Dosage: UNK
     Dates: start: 2016, end: 20160223
  9. FERRUM [Concomitant]
     Active Substance: FERROUS FUMARATE
     Dosage: UNK
     Dates: start: 2016, end: 20160223
  10. TRACLEER [Suspect]
     Active Substance: BOSENTAN
     Indication: SCLERODERMA ASSOCIATED DIGITAL ULCER
     Dosage: 125 MG, BID
     Route: 048
     Dates: start: 20130201, end: 20160223
  11. CLONIDINE. [Concomitant]
     Active Substance: CLONIDINE
     Indication: HYPERTENSION
  12. CHOLECALCIFEROL [Concomitant]
     Active Substance: CHOLECALCIFEROL
     Indication: PROPHYLAXIS
     Dosage: UNK
     Dates: start: 2016, end: 201602
  13. DIHYDRALAZINE [Concomitant]
     Indication: RENAL FAILURE
     Dosage: UNK
     Dates: start: 2016, end: 201602
  14. DIHYDRALAZINE [Concomitant]
     Indication: HYPERTENSION
  15. PREDNISOLONE. [Concomitant]
     Active Substance: PREDNISOLONE
     Indication: SYSTEMIC SCLEROSIS
     Dosage: UNK
     Dates: start: 201212, end: 201602
  16. METRONIDAZOLE. [Concomitant]
     Active Substance: METRONIDAZOLE
     Indication: OESOPHAGITIS
     Dosage: UNK
     Dates: start: 2016, end: 20160223
  17. ENALAPRIL [Concomitant]
     Active Substance: ENALAPRIL
     Indication: RENAL FAILURE
     Dosage: UNK
     Dates: start: 2016, end: 201602
  18. LORAZEPAM. [Concomitant]
     Active Substance: LORAZEPAM
     Indication: INSOMNIA
     Dosage: UNK
     Dates: start: 2016, end: 20160223
  19. CLONIDINE. [Concomitant]
     Active Substance: CLONIDINE
     Indication: RENAL FAILURE
     Dosage: UNK
     Dates: start: 2016, end: 201602
  20. BISOPROLOL [Concomitant]
     Active Substance: BISOPROLOL
     Indication: HYPERTENSION
  21. METRONIDAZOLE. [Concomitant]
     Active Substance: METRONIDAZOLE
     Indication: GASTRITIS
  22. METHOTREXATE [Concomitant]
     Active Substance: METHOTREXATE
  23. MYCOPHENOLATE MOFETIL. [Concomitant]
     Active Substance: MYCOPHENOLATE MOFETIL

REACTIONS (8)
  - Multiple organ dysfunction syndrome [Fatal]
  - Gamma-glutamyltransferase increased [Not Recovered/Not Resolved]
  - Decreased appetite [Not Recovered/Not Resolved]
  - Oesophageal candidiasis [Not Recovered/Not Resolved]
  - General physical health deterioration [Not Recovered/Not Resolved]
  - Systemic sclerosis [Not Recovered/Not Resolved]
  - Nausea [Not Recovered/Not Resolved]
  - Gastritis [Not Recovered/Not Resolved]

NARRATIVE: CASE EVENT DATE: 20160204
